FAERS Safety Report 5307437-7 (Version None)
Quarter: 2007Q2

REPORT INFORMATION
  Report Type: 
  Country: None (occurrence: None)
  Receive Date: 20070425
  Receipt Date: 20070410
  Transmission Date: 20071010
  Serious: Yes (Other)
  Sender: FDA-Public Use
  Company Number: DE-SHR-DE-2007-004760

PATIENT
  Age: 30 Year
  Sex: Female
  Weight: 53 kg

DRUGS (1)
  1. BETASERON [Suspect]
     Indication: MULTIPLE SCLEROSIS
     Dosage: UNK, EVERY 3D
     Route: 058
     Dates: start: 20060901

REACTIONS (4)
  - ANTIBODY TEST POSITIVE [None]
  - AUTOIMMUNE THYROIDITIS [None]
  - CHRONIC FATIGUE SYNDROME [None]
  - HYPOTHYROIDISM [None]
